FAERS Safety Report 7494207-7 (Version None)
Quarter: 2011Q2

REPORT INFORMATION
  Report Type: 
  Country: None (occurrence: None)
  Receive Date: 20110520
  Receipt Date: 20110509
  Transmission Date: 20111010
  Serious: Yes (Hospitalization)
  Sender: FDA-Public Use
  Company Number: US-JNJFOC-20110505416

PATIENT
  Sex: Female
  Weight: 64.4 kg

DRUGS (12)
  1. REMICADE [Suspect]
     Indication: CROHN'S DISEASE
     Route: 042
     Dates: start: 20110427
  2. VITAMIN D [Concomitant]
  3. DIPHENHYDRAMINE HCL [Concomitant]
  4. REMICADE [Suspect]
     Route: 042
     Dates: start: 20110507
  5. PREDNISONE [Concomitant]
     Route: 048
  6. FLAGYL [Concomitant]
     Indication: ANTIBIOTIC THERAPY
  7. CIPROFLOXACIN [Concomitant]
     Indication: ANTIBIOTIC THERAPY
  8. TUBERCULIN NOS [Concomitant]
  9. MESALAMINE [Concomitant]
  10. VITAMIN AND MINERAL PRENATAL SUPPLEMENT W/ FOLIC ACID CAP [Concomitant]
  11. PREVACID [Concomitant]
  12. PREDNISONE [Concomitant]
     Route: 042

REACTIONS (2)
  - DEHYDRATION [None]
  - CROHN'S DISEASE [None]
